FAERS Safety Report 7181766-7 (Version None)
Quarter: 2010Q4

REPORT INFORMATION
  Report Type: 
  Country: None (occurrence: None)
  Receive Date: 20101221
  Receipt Date: 20100429
  Transmission Date: 20110411
  Serious: No
  Sender: FDA-Public Use
  Company Number: US-AMGEN-TCS409546

PATIENT

DRUGS (8)
  1. ENBREL [Suspect]
     Indication: RHEUMATOID ARTHRITIS
     Dosage: 50 MG, QWK
     Route: 058
     Dates: start: 20100415
  2. METHOTREXATE [Concomitant]
  3. FOLIC ACID [Concomitant]
  4. VENLAFAXINE HCL [Concomitant]
  5. CLONAZEPAM [Concomitant]
  6. SIMVASTATIN [Concomitant]
  7. NICOTINE TRANSDERMAL [Concomitant]
  8. NAPROXEN SODIUM [Concomitant]

REACTIONS (7)
  - GLOSSODYNIA [None]
  - INJECTION SITE ERYTHEMA [None]
  - INJECTION SITE PAIN [None]
  - INJECTION SITE PRURITUS [None]
  - INJECTION SITE REACTION [None]
  - INJECTION SITE SWELLING [None]
  - ORAL PAIN [None]
